FAERS Safety Report 4916855-8 (Version None)
Quarter: 2006Q1

REPORT INFORMATION
  Report Type: 
  Country: None (occurrence: None)
  Receive Date: 20060113
  Receipt Date: 20051012
  Transmission Date: 20060701
  Serious: No
  Sender: FDA-Public Use
  Company Number: 2005SP002387

PATIENT
  Age: 84 Year
  Sex: Male

DRUGS (16)
  1. LUNESTA [Suspect]
     Indication: INSOMNIA
     Dosage: 2 MG;HS;ORAL
     Route: 048
     Dates: start: 20050806, end: 20050101
  2. GLYBURIDE [Concomitant]
  3. LISINOPRIL [Concomitant]
  4. METOPROLOL [Concomitant]
  5. NORVASC [Concomitant]
  6. PLAVIX [Concomitant]
  7. ISOSORBIDE [Concomitant]
  8. PRAVACHOL [Concomitant]
  9. DOXAZOSIN [Concomitant]
  10. POTASSIUM CHLORIDE [Concomitant]
  11. ACTONEL [Concomitant]
  12. FUROSEMIDE [Concomitant]
  13. CARBIDOPA [Concomitant]
  14. LEVODOPA [Concomitant]
  15. MIRAPEX [Concomitant]
  16. CLONAZEPAM [Concomitant]

REACTIONS (2)
  - DRUG INEFFECTIVE [None]
  - MIDDLE INSOMNIA [None]
